FAERS Safety Report 23697792 (Version 6)
Quarter: 2024Q3

REPORT INFORMATION
  Report Type: Spontaneous
  Country: US (occurrence: US)
  Receive Date: 20240402
  Receipt Date: 20240717
  Transmission Date: 20241017
  Serious: No
  Sender: BRISTOL MYERS SQUIBB
  Company Number: US-BRISTOL-MYERS SQUIBB COMPANY-2024-052198

PATIENT
  Age: 66 Year
  Sex: Female

DRUGS (1)
  1. REVLIMID [Suspect]
     Active Substance: LENALIDOMIDE
     Indication: Mantle cell lymphoma
     Route: 048
     Dates: start: 20230615

REACTIONS (14)
  - Agitated depression [Unknown]
  - Fatigue [Unknown]
  - Asthma [Unknown]
  - Bronchitis [Unknown]
  - Insomnia [Unknown]
  - Pain in extremity [Unknown]
  - Gait disturbance [Unknown]
  - Product physical issue [Unknown]
  - Product dose omission issue [Unknown]
  - Muscle tightness [Unknown]
  - Joint swelling [Unknown]
  - Infection [Unknown]
  - Cough [Unknown]
  - Contusion [Unknown]

NARRATIVE: CASE EVENT DATE: 20240401
